FAERS Safety Report 9193199 (Version 4)
Quarter: 2013Q2

REPORT INFORMATION
  Report Type: Report from Study
  Country: US (occurrence: US)
  Receive Date: 20130327
  Receipt Date: 20130503
  Transmission Date: 20140414
  Serious: Yes (Death, Hospitalization)
  Sender: FDA-Public Use
  Company Number: US-ACTELION-A-NJ2013-81079

PATIENT
  Age: 85 Year
  Sex: Male

DRUGS (3)
  1. TRACLEER [Suspect]
     Indication: PULMONARY ARTERIAL HYPERTENSION
     Dosage: UNK
     Route: 048
     Dates: end: 20130323
  2. ADCIRCA [Concomitant]
  3. PRADAXA [Concomitant]

REACTIONS (2)
  - Ventricular arrhythmia [Fatal]
  - Lower gastrointestinal haemorrhage [Recovered/Resolved]
